FAERS Safety Report 13187404 (Version 1)
Quarter: 2017Q1

REPORT INFORMATION
  Report Type: Spontaneous
  Country: GB (occurrence: GB)
  Receive Date: 20170206
  Receipt Date: 20170206
  Transmission Date: 20170428
  Serious: Yes (Hospitalization)
  Sender: FDA-Public Use
  Company Number: GB-ACCORD-047960

PATIENT
  Age: 74 Year
  Sex: Male

DRUGS (6)
  1. ATORVASTATIN/ATORVASTATIN CALCIUM [Concomitant]
  2. SERTRALINE [Suspect]
     Active Substance: SERTRALINE HYDROCHLORIDE
     Indication: DEPRESSION
     Route: 048
  3. VALPROIC ACID. [Suspect]
     Active Substance: VALPROIC ACID
     Indication: PRODUCT USED FOR UNKNOWN INDICATION
     Dosage: 250MG EVERY MORNING AND 500MG AT NIGHT.
     Route: 048
  4. METFORMIN [Concomitant]
     Active Substance: METFORMIN HYDROCHLORIDE
  5. RAMIPRIL. [Concomitant]
     Active Substance: RAMIPRIL
  6. AMLODIPINE [Concomitant]
     Active Substance: AMLODIPINE BESYLATE

REACTIONS (2)
  - Fall [Unknown]
  - Femoral neck fracture [Not Recovered/Not Resolved]
